FAERS Safety Report 5551251-4 (Version None)
Quarter: 2007Q4

REPORT INFORMATION
  Report Type: 
  Country: None (occurrence: None)
  Receive Date: 20071128
  Receipt Date: 20061030
  Transmission Date: 20080405
  Serious: Yes (Other)
  Sender: FDA-Public Use
  Company Number: 2006132088

PATIENT
  Sex: Male
  Weight: 75.7507 kg

DRUGS (6)
  1. LIPITOR [Suspect]
     Indication: BLOOD CHOLESTEROL
     Dosage: 10 MG (10 MG, 1 IN 1 D)
     Dates: start: 20040101, end: 20061028
  2. CORGARD [Concomitant]
  3. ASPIRIN [Concomitant]
  4. VITAMIN B6 [Concomitant]
  5. VITAMIN B12 [Concomitant]
  6. FOLIC ACID [Concomitant]

REACTIONS (5)
  - ARTHROPATHY [None]
  - MUSCLE SPASMS [None]
  - MUSCULAR WEAKNESS [None]
  - SENSORY DISTURBANCE [None]
  - SENSORY LOSS [None]
